FAERS Safety Report 13912632 (Version 2)
Quarter: 2017Q3

REPORT INFORMATION
  Report Type: Report from Study
  Country: PK (occurrence: PK)
  Receive Date: 20170828
  Receipt Date: 20170913
  Transmission Date: 20171127
  Serious: Yes (Death)
  Sender: FDA-Public Use
  Company Number: PHHY2017PK126365

PATIENT
  Sex: Female
  Weight: 62 kg

DRUGS (1)
  1. AFINITOR [Suspect]
     Active Substance: EVEROLIMUS
     Indication: BREAST CANCER
     Dosage: 10 MG, QD
     Route: 048
     Dates: start: 20170418

REACTIONS (3)
  - Myocardial infarction [Fatal]
  - Restlessness [Fatal]
  - Fatigue [Fatal]
